FAERS Safety Report 19994260 (Version 1)
Quarter: 2021Q4

REPORT INFORMATION
  Report Type: Spontaneous
  Country: GB (occurrence: GB)
  Receive Date: 20211025
  Receipt Date: 20211025
  Transmission Date: 20220303
  Serious: Yes (Other)
  Sender: FDA-Public Use
  Company Number: GB-ABBVIE-21K-167-4128425-00

PATIENT
  Age: 17 Year
  Sex: Female

DRUGS (6)
  1. VALPROATE SODIUM [Suspect]
     Active Substance: VALPROATE SODIUM
     Indication: Epilepsy
     Route: 065
  2. VALPROATE SODIUM [Suspect]
     Active Substance: VALPROATE SODIUM
     Route: 065
  3. LAMOTRIGINE [Interacting]
     Active Substance: LAMOTRIGINE
     Indication: Epilepsy
     Route: 065
  4. NORETHINDRONE ACETATE [Interacting]
     Active Substance: NORETHINDRONE ACETATE
     Indication: Contraception
     Route: 048
  5. LEVONORGESTREL [Interacting]
     Active Substance: LEVONORGESTREL
     Indication: Product used for unknown indication
     Route: 065
  6. ZONISAMIDE [Concomitant]
     Active Substance: ZONISAMIDE
     Indication: Product used for unknown indication

REACTIONS (4)
  - Petit mal epilepsy [Unknown]
  - Drug interaction [Unknown]
  - Therapeutic product effect incomplete [Unknown]
  - Fatigue [Unknown]
